FAERS Safety Report 8446559-9 (Version None)
Quarter: 2012Q2

REPORT INFORMATION
  Report Type: 
  Country: None (occurrence: None)
  Receive Date: 20120618
  Receipt Date: 20120605
  Transmission Date: 20120825
  Serious: Yes (Other)
  Sender: FDA-Public Use
  Company Number: CHPA2012US012055

PATIENT
  Sex: Female

DRUGS (2)
  1. EXCEDRIN EXTRA STRENGTH TABLETS [Suspect]
     Indication: SINUS HEADACHE
     Dosage: UNK DF, UNK
     Route: 048
  2. EXCEDRIN EXTRA STRENGTH TABLETS [Suspect]
     Dosage: 1 DF, UNK
     Route: 048
     Dates: end: 20120601

REACTIONS (4)
  - UNDERDOSE [None]
  - GASTRIC DISORDER [None]
  - DEPENDENCE [None]
  - DRUG DEPENDENCE [None]
